FAERS Safety Report 25214848 (Version 2)
Quarter: 2025Q2

REPORT INFORMATION
  Report Type: Spontaneous
  Country: US (occurrence: US)
  Receive Date: 20250418
  Receipt Date: 20250501
  Transmission Date: 20250717
  Serious: No
  Sender: PFIZER
  Company Number: US-PFIZER INC-202500076473

PATIENT
  Age: 7 Year
  Sex: Female
  Weight: 13.88 kg

DRUGS (2)
  1. GENOTROPIN [Suspect]
     Active Substance: SOMATROPIN
     Indication: Growth hormone deficiency
  2. GENOTROPIN [Suspect]
     Active Substance: SOMATROPIN
     Indication: Failure to thrive

REACTIONS (2)
  - Device information output issue [Unknown]
  - Device use issue [Unknown]

NARRATIVE: CASE EVENT DATE: 20250401
